FAERS Safety Report 6602302-7 (Version None)
Quarter: 2010Q1

REPORT INFORMATION
  Report Type: 
  Country: None (occurrence: None)
  Receive Date: 20100225
  Receipt Date: 20100217
  Transmission Date: 20100710
  Serious: Yes (Hospitalization, Other)
  Sender: FDA-Public Use
  Company Number: US-WATSON-2010-00249

PATIENT
  Sex: Male
  Weight: 74.83 kg

DRUGS (4)
  1. RAPAFLO [Suspect]
     Indication: PROSTATIC DISORDER
     Dosage: 1 CAPSULE DAILY
     Route: 048
     Dates: start: 20090601, end: 20100101
  2. RAPAFLO [Suspect]
     Indication: BENIGN PROSTATIC HYPERPLASIA
  3. VASOTEC [Concomitant]
     Indication: BLOOD PRESSURE
     Dosage: 2.5 MG, DAILY
     Route: 065
     Dates: start: 20080101
  4. IBUPROFEN [Concomitant]
     Indication: DRUG USE FOR UNKNOWN INDICATION
     Dosage: ^SPROADICALLY^
     Route: 065

REACTIONS (6)
  - ANAEMIA [None]
  - ASTHENIA [None]
  - BLOOD GLUCOSE INCREASED [None]
  - FATIGUE [None]
  - HYPERGLYCAEMIA [None]
  - PROSTATE CANCER [None]
